FAERS Safety Report 26209007 (Version 1)
Quarter: 2025Q4

REPORT INFORMATION
  Report Type: Spontaneous
  Country: EU (occurrence: EU)
  Receive Date: 20251229
  Receipt Date: 20251229
  Transmission Date: 20260118
  Serious: Yes (Hospitalization)
  Sender: MYLAN
  Company Number: EU-MYLANLABS-2025M1108993

PATIENT
  Age: 86 Year
  Sex: Female

DRUGS (2)
  1. APIXABAN [Suspect]
     Active Substance: APIXABAN
     Indication: Anticoagulant therapy
     Dosage: UNK
  2. APIXABAN [Suspect]
     Active Substance: APIXABAN
     Indication: Embolic stroke

REACTIONS (1)
  - Drug ineffective [Unknown]
